FAERS Safety Report 5524394-9 (Version None)
Quarter: 2007Q4

REPORT INFORMATION
  Report Type: 
  Country: None (occurrence: None)
  Receive Date: 20071121
  Receipt Date: 20071115
  Transmission Date: 20080405
  Serious: Yes (Other)
  Sender: FDA-Public Use
  Company Number: US-PFIZER INC-2007096840

PATIENT
  Sex: Female

DRUGS (5)
  1. REVATIO [Suspect]
     Indication: PULMONARY HYPERTENSION
  2. IMURAN [Concomitant]
  3. ENBREL [Concomitant]
  4. PREDNISOLONE [Concomitant]
  5. COUMADIN [Concomitant]

REACTIONS (1)
  - RETINITIS PIGMENTOSA [None]
